FAERS Safety Report 6343157-8 (Version None)
Quarter: 2009Q3

REPORT INFORMATION
  Report Type: 
  Country: None (occurrence: None)
  Receive Date: 20090908
  Receipt Date: 20090831
  Transmission Date: 20100115
  Serious: No
  Sender: FDA-Public Use
  Company Number: US-B.I. PHARMACEUTICALS,INC./RIDGEFIELD-2009-BP-09724BP

PATIENT
  Age: 62 Year
  Sex: Male

DRUGS (5)
  1. FLOMAX [Suspect]
     Indication: NOCTURIA
     Dosage: 0.4 MG
     Route: 048
     Dates: start: 20090810
  2. VOLTAREN [Concomitant]
  3. ADVAIR HFA [Concomitant]
  4. SPIRIVA [Concomitant]
  5. DUONEB [Concomitant]

REACTIONS (3)
  - BACK PAIN [None]
  - DIZZINESS [None]
  - SINUS CONGESTION [None]
